FAERS Safety Report 8099247-5 (Version None)
Quarter: 2012Q1

REPORT INFORMATION
  Report Type: 
  Country: None (occurrence: None)
  Receive Date: 20120129
  Receipt Date: 20111026
  Transmission Date: 20120608
  Serious: No
  Sender: FDA-Public Use
  Company Number: US-ABBOTT-11P-163-0869328-00

PATIENT
  Sex: Male
  Weight: 92.616 kg

DRUGS (4)
  1. HUMIRA [Suspect]
     Indication: CROHN'S DISEASE
     Route: 058
     Dates: start: 20110801, end: 20110801
  2. HUMIRA [Suspect]
     Route: 058
     Dates: start: 20110901, end: 20110901
  3. HUMIRA [Suspect]
     Route: 058
     Dates: start: 20110901
  4. ASACOL [Concomitant]
     Indication: CROHN'S DISEASE

REACTIONS (5)
  - FLATULENCE [None]
  - ARTHRALGIA [None]
  - CROHN'S DISEASE [None]
  - DIARRHOEA [None]
  - HAEMATOCHEZIA [None]
